FAERS Safety Report 6763954-4 (Version None)
Quarter: 2010Q2

REPORT INFORMATION
  Report Type: 
  Country: None (occurrence: None)
  Receive Date: 20100610
  Receipt Date: 20100601
  Transmission Date: 20101027
  Serious: Yes (Death, Hospitalization)
  Sender: FDA-Public Use
  Company Number: IL-SANOFI-AVENTIS-2010SA032567

PATIENT
  Sex: Female

DRUGS (20)
  1. GLYBURIDE [Suspect]
     Indication: TYPE 2 DIABETES MELLITUS
  2. AMITRIPTYLINE [Suspect]
  3. METFORMIN [Suspect]
     Indication: TYPE 2 DIABETES MELLITUS
  4. CIPROFLOXACIN [Suspect]
  5. VERAPAMIL [Suspect]
     Indication: HYPERTENSION
  6. ENALAPRIL [Suspect]
     Indication: HYPERTENSION
  7. ASPIRIN [Suspect]
  8. SIMVASTATIN [Suspect]
  9. THEOPHYLLINE [Suspect]
  10. FUROSEMIDE [Suspect]
     Indication: HYPERTENSION
  11. CITALOPRAM [Suspect]
  12. OMEPRAZOLE [Suspect]
  13. VANCOMYCIN [Suspect]
  14. LEVOFLOXACIN [Suspect]
  15. AMPICILLIN [Suspect]
  16. PIPERACILLIN [Suspect]
  17. AMIKACIN [Suspect]
  18. HYDROCORTISONE [Suspect]
     Indication: TOXIC EPIDERMAL NECROLYSIS
  19. CEFTRIAXONE SODIUM [Suspect]
     Indication: PNEUMONIA
  20. GAMMA GLOB ANTIVAR [Suspect]
     Route: 040

REACTIONS (4)
  - ACUTE RESPIRATORY DISTRESS SYNDROME [None]
  - BACTERAEMIA [None]
  - HAEMORRHAGE INTRACRANIAL [None]
  - TOXIC EPIDERMAL NECROLYSIS [None]
